FAERS Safety Report 23534281 (Version 1)
Quarter: 2024Q1

REPORT INFORMATION
  Report Type: Spontaneous
  Country: US (occurrence: US)
  Receive Date: 20240217
  Receipt Date: 20240217
  Transmission Date: 20240410
  Serious: No
  Sender: FDA-Public Use
  Company Number: US-SA-SAC20240215000235

PATIENT
  Age: 78 Year
  Sex: Female

DRUGS (1)
  1. DUPIXENT [Suspect]
     Active Substance: DUPILUMAB
     Indication: Asthma
     Dosage: 300MG EVERY OTHER WEEK
     Route: 058

REACTIONS (3)
  - Back pain [Unknown]
  - Dyspnoea [Unknown]
  - Spinal operation [Unknown]

NARRATIVE: CASE EVENT DATE: 20240201
